FAERS Safety Report 20672163 (Version 1)
Quarter: 2022Q2

REPORT INFORMATION
  Report Type: Spontaneous
  Country: DE (occurrence: DE)
  Receive Date: 20220405
  Receipt Date: 20220405
  Transmission Date: 20220720
  Serious: Yes (Other)
  Sender: FDA-Public Use
  Company Number: DE-002147023-NVSC2022DE070745

PATIENT
  Age: 81 Year
  Sex: Female

DRUGS (4)
  1. LUCENTIS [Suspect]
     Active Substance: RANIBIZUMAB
     Indication: Neovascular age-related macular degeneration
     Dosage: UNK, Q4W
     Route: 065
  2. CANDESARTAN [Suspect]
     Active Substance: CANDESARTAN
     Indication: Vascular graft occlusion
     Dosage: UNK (DAILY EVENING)
     Route: 065
  3. ASPIRIN [Suspect]
     Active Substance: ASPIRIN
     Indication: Coronary artery occlusion
     Dosage: UNK UNK, QD, ASS DEXCEL PROTECT,  100 MG WAS TAKEN AT NOON
     Route: 065
  4. BETA BLOCKER (UNK INGREDIENTS) [Concomitant]

REACTIONS (1)
  - Lactic acidosis [Recovered/Resolved]
